FAERS Safety Report 8102056-1 (Version None)
Quarter: 2012Q1

REPORT INFORMATION
  Report Type: 
  Country: None (occurrence: None)
  Receive Date: 20120131
  Receipt Date: 20120124
  Transmission Date: 20120608
  Serious: Yes (Hospitalization)
  Sender: FDA-Public Use
  Company Number: US-B.I. PHARMACEUTICALS,INC./RIDGEFIELD-2012-BP-01633BP

PATIENT
  Age: 7 Decade
  Sex: Male

DRUGS (2)
  1. SULFONYLUREA [Concomitant]
  2. TRADJENTA [Suspect]
     Dosage: 5 MG

REACTIONS (1)
  - HYPOGLYCAEMIA [None]
